FAERS Safety Report 19350790 (Version 1)
Quarter: 2021Q2

REPORT INFORMATION
  Report Type: Spontaneous
  Country: US (occurrence: US)
  Receive Date: 20210531
  Receipt Date: 20210531
  Transmission Date: 20210717
  Serious: Yes (Other)
  Sender: FDA-Public Use
  Company Number: US-ROCHE-2836866

PATIENT
  Age: 57 Year
  Sex: Male
  Weight: 104.42 kg

DRUGS (5)
  1. METFORMIN [Concomitant]
     Active Substance: METFORMIN HYDROCHLORIDE
     Route: 048
     Dates: start: 202001
  2. PANTOPRAZOLE [Concomitant]
     Active Substance: PANTOPRAZOLE
     Indication: GASTROOESOPHAGEAL REFLUX DISEASE
     Dosage: YES
     Route: 048
  3. MECLIZINE [Concomitant]
     Active Substance: MECLIZINE HYDROCHLORIDE
     Indication: VERTIGO
  4. RITUXAN [Suspect]
     Active Substance: RITUXIMAB
     Indication: GRANULOMATOSIS WITH POLYANGIITIS
     Dosage: YES
     Route: 041
     Dates: start: 201612
  5. LOSARTAN. [Concomitant]
     Active Substance: LOSARTAN
     Route: 048

REACTIONS (6)
  - Headache [Unknown]
  - Polycythaemia vera [Not Recovered/Not Resolved]
  - Nausea [Unknown]
  - Paraesthesia [Recovered/Resolved]
  - Glucose tolerance impaired [Not Recovered/Not Resolved]
  - Tremor [Recovered/Resolved]

NARRATIVE: CASE EVENT DATE: 202001
